FAERS Safety Report 8428704-4 (Version None)
Quarter: 2012Q2

REPORT INFORMATION
  Report Type: 
  Country: None (occurrence: None)
  Receive Date: 20120606
  Receipt Date: 20120522
  Transmission Date: 20120825
  Serious: Yes (Life-Threatening, Hospitalization)
  Sender: FDA-Public Use
  Company Number: TPA2012A03142

PATIENT
  Age: 83 Year
  Sex: Male

DRUGS (6)
  1. DIGITOXIN TAB [Suspect]
     Dosage: 0.07 MG (0.07 MG, 1 IN 1 D)
  2. NORVASC (AMLDOIPINE BESILATE) [Concomitant]
  3. ADENURIC (FEBUXOSTAT) [Suspect]
     Indication: HYPERURICAEMIA
     Dosage: 80 MG (20 MG, 1 IN 1 D, ORAL
     Route: 048
     Dates: start: 20111001
  4. MARCUMAR [Suspect]
     Indication: ATRIAL FIBRILLATION
     Dosage: TARGET INR 2-3
  5. FUROSEMIDE [Concomitant]
  6. METOPROLOL (METOPOLOL TARTRATE) [Concomitant]

REACTIONS (1)
  - ACUTE HEPATIC FAILURE [None]
